FAERS Safety Report 6400565-4 (Version None)
Quarter: 2009Q4

REPORT INFORMATION
  Report Type: 
  Country: None (occurrence: None)
  Receive Date: 20091014
  Receipt Date: 20090930
  Transmission Date: 20100525
  Serious: Yes (Death)
  Sender: FDA-Public Use
  Company Number: GB-MYLANLABS-2009S1017198

PATIENT
  Sex: Male
  Weight: 85 kg

DRUGS (6)
  1. ACYCLOVIR [Suspect]
     Indication: HERPES ZOSTER
     Route: 042
     Dates: start: 20090824, end: 20090825
  2. OMEPRAZOLE [Suspect]
     Indication: DRUG USE FOR UNKNOWN INDICATION
  3. VELCADE [Suspect]
     Indication: MULTIPLE MYELOMA
     Dates: start: 20090724, end: 20090819
  4. ATENOLOL [Concomitant]
     Indication: HYPERTENSION
     Route: 048
     Dates: start: 20080101, end: 20090824
  5. DOXAZOSIN MESYLATE [Concomitant]
     Indication: HYPERTENSION
     Route: 042
     Dates: start: 20080101, end: 20090824
  6. RAMIPRIL [Concomitant]
     Indication: HYPERTENSION
     Route: 048
     Dates: start: 20080101, end: 20090822

REACTIONS (5)
  - ANURIA [None]
  - CONFUSIONAL STATE [None]
  - HYPOTENSION [None]
  - PULMONARY OEDEMA [None]
  - RENAL FAILURE ACUTE [None]
